FAERS Safety Report 8324112 (Version 2)
Quarter: 2012Q4

REPORT INFORMATION
  Report Type: Report from Study
  Country: US (occurrence: US)
  Receive Date: 20120105
  Receipt Date: 20121009
  Transmission Date: 20130627
  Serious: Yes (Life-Threatening, Hospitalization)
  Sender: FDA-Public Use
  Company Number: US-ROCHE-1001658

PATIENT
  Age: 78 Year
  Sex: Female

DRUGS (13)
  1. RANIBIZUMAB [Suspect]
     Indication: AGE-RELATED MACULAR DEGENERATION
     Dosage: Date of last dose prior to sae on 29 November 2011.
     Route: 050
     Dates: start: 20100406, end: 20110823
  2. ASPIRIN [Concomitant]
     Indication: THROMBOSIS PROPHYLAXIS
     Route: 048
     Dates: start: 2000
  3. LIPITOR [Concomitant]
     Indication: BLOOD CHOLESTEROL INCREASED
     Route: 048
     Dates: start: 2000
  4. FOLIC ACID [Concomitant]
     Route: 048
     Dates: start: 2000
  5. GLIPIZIDE [Concomitant]
     Indication: DIABETES MELLITUS
     Route: 048
     Dates: start: 2007
  6. BENICAR [Concomitant]
     Indication: HYPERTENSION
     Route: 048
     Dates: start: 1985
  7. SYNTHROID [Concomitant]
     Indication: BASEDOW^S DISEASE
     Route: 048
     Dates: start: 1966
  8. METOPROLOL [Concomitant]
     Indication: HYPERTENSION
     Route: 048
     Dates: start: 1985
  9. ACIPHEX [Concomitant]
     Indication: GASTROOESOPHAGEAL REFLUX DISEASE
     Route: 048
     Dates: start: 2005
  10. EFFEXOR [Concomitant]
     Indication: DEPRESSION
     Route: 048
     Dates: start: 2000
  11. CALCIUM [Concomitant]
     Indication: BONE LOSS
     Route: 048
     Dates: start: 2000
  12. LUTEIN [Concomitant]
     Route: 048
     Dates: start: 2000
  13. MULTIVITAMIN [Concomitant]
     Route: 048
     Dates: start: 2000

REACTIONS (2)
  - Ventricular tachycardia [Recovered/Resolved]
  - Atrial tachycardia [Recovered/Resolved]
